FAERS Safety Report 15833656 (Version 2)
Quarter: 2019Q1

REPORT INFORMATION
  Report Type: Spontaneous
  Country: DE (occurrence: DE)
  Receive Date: 20190116
  Receipt Date: 20190118
  Transmission Date: 20190417
  Serious: Yes (Other)
  Sender: FDA-Public Use
  Company Number: DE-PFIZER INC-2019018379

PATIENT
  Sex: Female

DRUGS (1)
  1. DELIX (RAMIPRIL) [Suspect]
     Active Substance: RAMIPRIL
     Dosage: 7.5 MG, UNK (5 MG IN THE MORNING, 2.5 MG IN THE EVENING)
     Route: 048

REACTIONS (3)
  - Confusional state [Not Recovered/Not Resolved]
  - Angina pectoris [Not Recovered/Not Resolved]
  - Nausea [Not Recovered/Not Resolved]

NARRATIVE: CASE EVENT DATE: 2018
